FAERS Safety Report 21279922 (Version 2)
Quarter: 2022Q3

REPORT INFORMATION
  Report Type: Report from Study
  Country: CO (occurrence: CO)
  Receive Date: 20220901
  Receipt Date: 20220919
  Transmission Date: 20221026
  Serious: Yes (Other)
  Sender: FDA-Public Use
  Company Number: CO-ASTELLAS-2022US030787

PATIENT
  Age: 85 Year
  Sex: Male

DRUGS (2)
  1. ENZALUTAMIDE [Suspect]
     Active Substance: ENZALUTAMIDE
     Indication: Hormone-refractory prostate cancer
     Route: 048
     Dates: start: 20190815
  2. LEVOTHYROXINE SODIUM [Concomitant]
     Active Substance: LEVOTHYROXINE SODIUM
     Indication: Thyroid disorder
     Dosage: 25 ?G, UNKNOWN FREQ. (FOR 3 MONTHS) AND WAS RE-FORMULATED 06-SEP-2022
     Route: 065

REACTIONS (10)
  - Choking [Recovering/Resolving]
  - Asphyxia [Recovering/Resolving]
  - Gastrooesophageal reflux disease [Recovering/Resolving]
  - Abdominal discomfort [Recovering/Resolving]
  - Hypertension [Recovering/Resolving]
  - Bone pain [Not Recovered/Not Resolved]
  - Decreased appetite [Recovering/Resolving]
  - Pain [Not Recovered/Not Resolved]
  - Cough [Recovering/Resolving]
  - Chronic obstructive pulmonary disease [Recovering/Resolving]

NARRATIVE: CASE EVENT DATE: 20190101
